FAERS Safety Report 18533655 (Version 2)
Quarter: 2020Q4

REPORT INFORMATION
  Report Type: Spontaneous
  Country: AU (occurrence: AU)
  Receive Date: 20201123
  Receipt Date: 20201209
  Transmission Date: 20210114
  Serious: Yes (Other)
  Sender: FDA-Public Use
  Company Number: AU-PFIZER INC-2020460930

PATIENT
  Age: 79 Year
  Sex: Female

DRUGS (5)
  1. SOMAC [Suspect]
     Active Substance: PANTOPRAZOLE SODIUM
     Dosage: UNK
     Route: 065
  2. EBIXA [Suspect]
     Active Substance: MEMANTINE HYDROCHLORIDE
     Dosage: UNK
     Route: 065
  3. CLOPIDOGREL [Suspect]
     Active Substance: CLOPIDOGREL BISULFATE
     Dosage: UNK
     Route: 065
  4. TRITACE [Suspect]
     Active Substance: RAMIPRIL
     Dosage: UNK
     Route: 065
  5. REMINYL [Suspect]
     Active Substance: GALANTAMINE
     Dosage: UNK
     Route: 065

REACTIONS (8)
  - Nightmare [Unknown]
  - Chest discomfort [Unknown]
  - Paralysis [Unknown]
  - Tremor [Unknown]
  - Agitation [Unknown]
  - Asthenia [Unknown]
  - Hyperhidrosis [Unknown]
  - Vision blurred [Unknown]

NARRATIVE: CASE EVENT DATE: 20201004
